FAERS Safety Report 5817644-2 (Version None)
Quarter: 2008Q3

REPORT INFORMATION
  Report Type: 
  Country: None (occurrence: None)
  Receive Date: 20080722
  Receipt Date: 20080710
  Transmission Date: 20090109
  Serious: Yes (Other)
  Sender: FDA-Public Use
  Company Number: JP-ROCHE-557175

PATIENT
  Sex: Male
  Weight: 28 kg

DRUGS (4)
  1. TAMIFLU [Suspect]
     Indication: INFLUENZA
     Dosage: DRUG: TAMIFLU DRY SYRUP 3 %.
     Route: 048
     Dates: start: 20070202, end: 20070203
  2. ASVERIN [Concomitant]
     Route: 048
     Dates: start: 20070202
  3. MUCOSOLVAN [Concomitant]
     Route: 048
     Dates: start: 20070202
  4. HOKUNALIN [Concomitant]
     Dosage: FORM: TAPE
     Route: 062
     Dates: start: 20070202

REACTIONS (4)
  - ABNORMAL BEHAVIOUR [None]
  - AGGRESSION [None]
  - SOMNAMBULISM [None]
  - SOMNOLENCE [None]
